FAERS Safety Report 21235301 (Version 1)
Quarter: 2022Q3

REPORT INFORMATION
  Report Type: Spontaneous
  Country: US (occurrence: US)
  Receive Date: 20220821
  Receipt Date: 20220821
  Transmission Date: 20221027
  Serious: Yes (Other)
  Sender: FDA-Public Use
  Company Number: US-SA-SAC20220818001917

PATIENT
  Sex: Male

DRUGS (19)
  1. DUPIXENT [Suspect]
     Active Substance: DUPILUMAB
     Indication: Asthma
     Dosage: 300 MG, QOW
     Route: 058
     Dates: start: 201908
  2. TOBRAMYCIN [Concomitant]
     Active Substance: TOBRAMYCIN
  3. ESOMEPRAZOLE MAGNESIUM [Concomitant]
     Active Substance: ESOMEPRAZOLE MAGNESIUM
  4. FOLIC ACID [Concomitant]
     Active Substance: FOLIC ACID
  5. LYCOPENE [Concomitant]
     Active Substance: LYCOPENE
  6. VITAMINS [Concomitant]
     Active Substance: VITAMINS
  7. NASACORT [Concomitant]
     Active Substance: TRIAMCINOLONE ACETONIDE
  8. PREDNISONE [Concomitant]
     Active Substance: PREDNISONE
  9. VITAMIN K [Concomitant]
     Active Substance: PHYTONADIONE
  10. XOLAIR [Concomitant]
     Active Substance: OMALIZUMAB
  11. ZITHROMAX [Concomitant]
     Active Substance: AZITHROMYCIN DIHYDRATE
  12. DALIRESP [Concomitant]
     Active Substance: ROFLUMILAST
  13. FUROSEMIDE [Concomitant]
     Active Substance: FUROSEMIDE
  14. TRELEGY ELLIPTA [Concomitant]
     Active Substance: FLUTICASONE FUROATE\UMECLIDINIUM BROMIDE\VILANTEROL TRIFENATATE
  15. ALBUTEROL SULFATE [Concomitant]
     Active Substance: ALBUTEROL SULFATE
  16. BUDESONIDE [Concomitant]
     Active Substance: BUDESONIDE
  17. SODIUM CHLORIDE [Concomitant]
     Active Substance: SODIUM CHLORIDE
  18. PROSTATEP [Concomitant]
  19. COENZYME Q10 [Concomitant]
     Active Substance: DIETARY SUPPLEMENT\UBIDECARENONE

REACTIONS (1)
  - Pneumonia [Unknown]
